FAERS Safety Report 7554686-3 (Version None)
Quarter: 2011Q2

REPORT INFORMATION
  Report Type: 
  Country: None (occurrence: None)
  Receive Date: 20110617
  Receipt Date: 20110608
  Transmission Date: 20111010
  Serious: Yes (Death, Hospitalization)
  Sender: FDA-Public Use
  Company Number: US-JNJFOC-20110511541

PATIENT
  Sex: Female
  Weight: 181.44 kg

DRUGS (11)
  1. STELARA [Suspect]
     Route: 058
     Dates: start: 20110224
  2. EFFEXOR [Concomitant]
  3. STELARA [Suspect]
     Route: 058
     Dates: start: 20101122
  4. INSULIN [Concomitant]
  5. STELARA [Suspect]
     Indication: PSORIASIS
     Route: 058
     Dates: start: 20100822
  6. LAMICTAL [Concomitant]
  7. GLUCOPHAGE [Concomitant]
  8. SYNTHROID [Concomitant]
  9. LANTUS [Concomitant]
  10. STELARA [Suspect]
     Route: 058
     Dates: start: 20100101
  11. RISPERDAL [Concomitant]

REACTIONS (3)
  - GANGRENE [None]
  - STREPTOCOCCAL INFECTION [None]
  - SEPTIC SHOCK [None]
